FAERS Safety Report 17259820 (Version 1)
Quarter: 2020Q1

REPORT INFORMATION
  Report Type: Spontaneous
  Country: FR (occurrence: FR)
  Receive Date: 20200111
  Receipt Date: 20200111
  Transmission Date: 20200409
  Serious: Yes (Other)
  Sender: FDA-Public Use
  Company Number: FR-TEVA-2020-FR-1165366

PATIENT
  Age: 68 Year
  Sex: Female

DRUGS (7)
  1. SERESTA 10 MG, COMPRIME [Suspect]
     Active Substance: OXAZEPAM
     Indication: ANXIETY
     Dosage: 0.5 - 0.5 -0 (0.5 IF NEEDED)
     Route: 048
     Dates: start: 201910
  2. DEROXAT [Concomitant]
     Active Substance: PAROXETINE HYDROCHLORIDE
  3. MACROGOL 3350 [Concomitant]
     Active Substance: POLYETHYLENE GLYCOL 3350
  4. AZILECT [Suspect]
     Active Substance: RASAGILINE MESYLATE
     Indication: PARKINSONISM
     Dosage: 2 DOSAGE FORMS DAILY;
     Route: 048
     Dates: start: 2019
  5. SINEMET LP 100 MG/25 MG, COMPRIME A LIBERATION PROLONGEE [Suspect]
     Active Substance: CARBIDOPA\LEVODOPA
     Indication: PARKINSONISM
     Dosage: 1-1-1-1 (4 DOSAGE FORMS PER DAY)
     Route: 048
     Dates: start: 2017
  6. TRIMEBUTINE [Concomitant]
     Active Substance: TRIMEBUTINE
  7. PARACETAMOL [Concomitant]
     Active Substance: ACETAMINOPHEN

REACTIONS (3)
  - Hallucination, visual [Not Recovered/Not Resolved]
  - Apathy [Not Recovered/Not Resolved]
  - Disturbance in attention [Not Recovered/Not Resolved]

NARRATIVE: CASE EVENT DATE: 201910
